FAERS Safety Report 12564793 (Version 1)
Quarter: 2016Q3

REPORT INFORMATION
  Report Type: Spontaneous
  Country: US (occurrence: None)
  Receive Date: 20160718
  Receipt Date: 20160718
  Transmission Date: 20161109
  Serious: No
  Sender: FDA-Public Use
  Company Number: None

PATIENT

DRUGS (1)
  1. HUMATE-P [Suspect]
     Active Substance: HUMAN COAGULATION FACTOR VIII/VON WILLEBRAND FACTOR COMPLEX
     Indication: VON WILLEBRAND^S DISEASE
     Route: 040
     Dates: start: 20160715, end: 20160715

REACTIONS (4)
  - Product quality issue [None]
  - Product reconstitution issue [None]
  - Product deposit [None]
  - Liquid product physical issue [None]

NARRATIVE: CASE EVENT DATE: 20160715
